FAERS Safety Report 8418357-3 (Version None)
Quarter: 2012Q2

REPORT INFORMATION
  Report Type: 
  Country: None (occurrence: None)
  Receive Date: 20120607
  Receipt Date: 20120604
  Transmission Date: 20120825
  Serious: Yes (Congenital Anomaly, Other)
  Sender: FDA-Public Use
  Company Number: US-PFIZER INC-2012133925

PATIENT
  Sex: Female

DRUGS (1)
  1. ZOLOFT [Suspect]
     Dosage: UNK
     Route: 064

REACTIONS (13)
  - MATERNAL EXPOSURE DURING PREGNANCY [None]
  - COARCTATION OF THE AORTA [None]
  - PULMONARY MALFORMATION [None]
  - ATRIAL SEPTAL DEFECT [None]
  - MALFORMATION VENOUS [None]
  - CONGENITAL AORTIC ANOMALY [None]
  - CONGENITAL HEART VALVE DISORDER [None]
  - CONGENITAL ANOMALY [None]
  - VASCULAR ANOMALY [None]
  - PULMONARY VALVE STENOSIS [None]
  - VENTRICULAR SEPTAL DEFECT [None]
  - PATENT DUCTUS ARTERIOSUS [None]
  - EXOMPHALOS [None]
